FAERS Safety Report 6845016-0 (Version None)
Quarter: 2010Q3

REPORT INFORMATION
  Report Type: 
  Country: None (occurrence: None)
  Receive Date: 20100715
  Receipt Date: 20100707
  Transmission Date: 20110219
  Serious: Yes (Hospitalization, Other)
  Sender: FDA-Public Use
  Company Number: US-CELGENEUS-163-21880-06121114

PATIENT
  Age: 70 Year
  Sex: Female
  Weight: 74 kg

DRUGS (10)
  1. REVLIMID [Suspect]
     Route: 048
     Dates: start: 20051116
  2. REVLIMID [Suspect]
     Route: 048
     Dates: start: 20050310
  3. DEXAMETHASONE [Suspect]
     Route: 048
     Dates: start: 20051116
  4. DEXAMETHASONE [Suspect]
     Route: 048
     Dates: start: 20050310
  5. AMBIEN [Concomitant]
     Indication: PRODUCT USED FOR UNKNOWN INDICATION
     Route: 065
  6. CALCIUM [Concomitant]
     Indication: PRODUCT USED FOR UNKNOWN INDICATION
     Route: 065
  7. DILTIAZEM [Concomitant]
     Indication: PRODUCT USED FOR UNKNOWN INDICATION
     Route: 065
  8. LASIX [Concomitant]
     Indication: PRODUCT USED FOR UNKNOWN INDICATION
     Route: 065
  9. VICODIN [Concomitant]
     Indication: PRODUCT USED FOR UNKNOWN INDICATION
     Route: 065
  10. VITAMIN D [Concomitant]
     Indication: PRODUCT USED FOR UNKNOWN INDICATION
     Route: 065

REACTIONS (4)
  - CEREBRAL ISCHAEMIA [None]
  - MYOCARDIAL ISCHAEMIA [None]
  - THROMBOSIS [None]
  - WEIGHT INCREASED [None]
